FAERS Safety Report 24182066 (Version 2)
Quarter: 2024Q3

REPORT INFORMATION
  Report Type: Spontaneous
  Country: GB (occurrence: GB)
  Receive Date: 20240807
  Receipt Date: 20240828
  Transmission Date: 20241016
  Serious: Yes (Other)
  Sender: CELLTRION
  Company Number: GB-CELLTRION INC.-2024GB018544

PATIENT

DRUGS (1)
  1. INFLIXIMAB [Suspect]
     Active Substance: INFLIXIMAB
     Indication: Crohn^s disease
     Dosage: 120 MG PRE FILLED PEN PK2
     Route: 058
     Dates: start: 202301

REACTIONS (7)
  - Crohn^s disease [Unknown]
  - Burning sensation [Unknown]
  - Depression [Unknown]
  - Accidental exposure to product [Unknown]
  - Exposure via skin contact [Unknown]
  - Loss of personal independence in daily activities [Unknown]
  - Device malfunction [Unknown]
